FAERS Safety Report 23497869 (Version 1)
Quarter: 2024Q1

REPORT INFORMATION
  Report Type: Spontaneous
  Country: US (occurrence: None)
  Receive Date: 20240207
  Receipt Date: 20240207
  Transmission Date: 20240410
  Serious: No
  Sender: FDA-Public Use
  Company Number: US-ROCHE-3437726

PATIENT
  Age: 49 Year
  Sex: Female

DRUGS (15)
  1. XOLAIR [Suspect]
     Active Substance: OMALIZUMAB
     Indication: Asthma
     Dosage: STRENGTH: 150MG/ML?INJECT 2 SYRINGE
     Route: 058
     Dates: start: 20210217
  2. XOLAIR [Suspect]
     Active Substance: OMALIZUMAB
  3. XOLAIR [Suspect]
     Active Substance: OMALIZUMAB
  4. VANCOMYCIN [Concomitant]
     Active Substance: VANCOMYCIN
  5. ASMANEX [Concomitant]
     Active Substance: MOMETASONE FUROATE
     Dosage: 100MCG
  6. AZITHROMYCIN [Concomitant]
     Active Substance: AZITHROMYCIN
  7. CHLORTHALIDONE [Concomitant]
     Active Substance: CHLORTHALIDONE
  8. FLOVENT HFA [Concomitant]
     Active Substance: FLUTICASONE PROPIONATE
     Dosage: 110MCG
  9. JUNEL FE 1/20 [Concomitant]
     Active Substance: ETHINYL ESTRADIOL\NORETHINDRONE ACETATE
     Dosage: 24 TAB 1/20
  10. LIDOCAINE [Concomitant]
     Active Substance: LIDOCAINE
  11. LISINOPRIL [Concomitant]
     Active Substance: LISINOPRIL
  12. LISINOPRIL [Concomitant]
     Active Substance: LISINOPRIL
  13. MOMETASONE [Concomitant]
     Active Substance: MOMETASONE
     Dosage: SPR 50MCG
  14. OMEPRAZOLE [Concomitant]
     Active Substance: OMEPRAZOLE
  15. OZEMPIC [Concomitant]
     Active Substance: SEMAGLUTIDE
     Dosage: 2MG/3ML

REACTIONS (1)
  - Asthma [Unknown]

NARRATIVE: CASE EVENT DATE: 20230920
